FAERS Safety Report 7874450-5 (Version None)
Quarter: 2011Q4

REPORT INFORMATION
  Report Type: 
  Country: None (occurrence: None)
  Receive Date: 20111030
  Receipt Date: 20110520
  Transmission Date: 20120403
  Serious: No
  Sender: FDA-Public Use
  Company Number: US-AMGEN-USASP2011026365

PATIENT
  Age: 60 Year
  Sex: Female

DRUGS (2)
  1. ENBREL [Suspect]
     Indication: RHEUMATOID ARTHRITIS
     Dosage: 50 MG, QWK
     Dates: start: 20110301
  2. METHOTREXATE [Concomitant]

REACTIONS (5)
  - HEADACHE [None]
  - RHINORRHOEA [None]
  - OROPHARYNGEAL PAIN [None]
  - VOMITING [None]
  - DIARRHOEA [None]
